FAERS Safety Report 4710283-6 (Version None)
Quarter: 2005Q3

REPORT INFORMATION
  Report Type: 
  Country: None (occurrence: None)
  Receive Date: 20050711
  Receipt Date: 20050628
  Transmission Date: 20060218
  Serious: Yes (Hospitalization, Other)
  Sender: FDA-Public Use
  Company Number: US-JNJFOC-20050304594

PATIENT
  Sex: Female
  Weight: 77.11 kg

DRUGS (27)
  1. REMICADE [Suspect]
     Indication: ARTHRITIS
     Dosage: 4 TO 5 YEARS
     Route: 042
  2. REMICADE [Suspect]
     Route: 042
  3. GLUCOPHAGE [Concomitant]
  4. GLYBURIDE [Concomitant]
  5. ASACOL [Concomitant]
  6. INDERAL [Concomitant]
  7. PAXIL [Concomitant]
     Indication: ANXIETY
  8. FOSINOPRIL [Concomitant]
     Indication: BLOOD PRESSURE
  9. LIPITOR [Concomitant]
  10. PLAVIX [Concomitant]
  11. ASPIRIN [Concomitant]
  12. VITAMIN B COMPLEX CAP [Concomitant]
  13. VITAMIN E [Concomitant]
  14. SOY [Concomitant]
  15. NIASPAN [Concomitant]
  16. SYNTHROID [Concomitant]
  17. ASCORBIC ACID [Concomitant]
  18. DIABETA [Concomitant]
  19. ISOFLAVONE [Concomitant]
  20. FISH OIL [Concomitant]
  21. AMITRIPTYLINE HCL [Concomitant]
  22. CATAPRES [Concomitant]
  23. LASIX [Concomitant]
  24. POTASSIUM CHLORIDE [Concomitant]
  25. ACCUPRIL [Concomitant]
  26. AEROSOL [Concomitant]
  27. AEROSOL [Concomitant]

REACTIONS (10)
  - BRONCHITIS [None]
  - CHRONIC OBSTRUCTIVE PULMONARY DISEASE [None]
  - GASTROINTESTINAL PAIN [None]
  - IMMUNE SYSTEM DISORDER [None]
  - LIPIDS INCREASED [None]
  - LUNG DISORDER [None]
  - MYOCARDIAL INFARCTION [None]
  - RESPIRATORY FAILURE [None]
  - RHEUMATOID ARTHRITIS [None]
  - SINUSITIS [None]
